FAERS Safety Report 6389281-5 (Version None)
Quarter: 2009Q4

REPORT INFORMATION
  Report Type: 
  Country: None (occurrence: None)
  Receive Date: 20091006
  Receipt Date: 20090929
  Transmission Date: 20100525
  Serious: Yes (Life-Threatening, Hospitalization)
  Sender: FDA-Public Use
  Company Number: PHHY2008JP02315

PATIENT
  Sex: Male
  Weight: 35 kg

DRUGS (9)
  1. GLEEVEC [Suspect]
     Indication: CHRONIC MYELOID LEUKAEMIA
     Dosage: 100-200 MG EVERY OTHER DAY
     Route: 048
     Dates: start: 20030710, end: 20071210
  2. GLEEVEC [Suspect]
     Dosage: 200 MG DAILY
     Route: 048
     Dates: end: 20090508
  3. GLEEVEC [Suspect]
     Dosage: 200 MG DAILY
     Route: 048
     Dates: start: 20090514, end: 20090625
  4. SEDIEL [Suspect]
     Indication: ANXIETY DISORDER
     Dosage: 30 MG DAILY
     Route: 048
     Dates: start: 20090416, end: 20090508
  5. TETRAMIDE [Suspect]
     Indication: ANXIETY DISORDER
     Dosage: 20 MG DAILY
     Route: 048
     Dates: start: 20090416, end: 20090508
  6. ATARAX [Suspect]
     Indication: ANXIETY
     Dosage: 25 MG DAILY
     Route: 042
     Dates: start: 20090507, end: 20090507
  7. ATARAX [Suspect]
     Indication: ANXIETY DISORDER
     Dosage: 25 MG DAILY
     Route: 048
     Dates: start: 20090507, end: 20090508
  8. HALCION [Concomitant]
     Indication: INSOMNIA
     Dosage: 0.25 MG
     Route: 048
     Dates: start: 20070101, end: 20071210
  9. LASIX [Concomitant]
     Indication: OEDEMA
     Dosage: 20 MG
     Route: 048
     Dates: start: 20070101, end: 20071210

REACTIONS (33)
  - ALANINE AMINOTRANSFERASE INCREASED [None]
  - ANXIETY [None]
  - ASPARTATE AMINOTRANSFERASE INCREASED [None]
  - BLOOD ALKALINE PHOSPHATASE INCREASED [None]
  - BLOOD CREATINE PHOSPHOKINASE INCREASED [None]
  - BLOOD CREATININE INCREASED [None]
  - BLOOD GLUCOSE INCREASED [None]
  - BLOOD LACTATE DEHYDROGENASE INCREASED [None]
  - BLOOD POTASSIUM DECREASED [None]
  - BONE MARROW FAILURE [None]
  - C-REACTIVE PROTEIN INCREASED [None]
  - CONVULSION [None]
  - DRUG INTERACTION [None]
  - DRUG LEVEL INCREASED [None]
  - DYSPNOEA [None]
  - HAEMATOCRIT DECREASED [None]
  - HAEMOGLOBIN DECREASED [None]
  - INSOMNIA [None]
  - INTERSTITIAL LUNG DISEASE [None]
  - LOGORRHOEA [None]
  - LUNG INFECTION [None]
  - MUSCLE SPASMS [None]
  - NEUROLEPTIC MALIGNANT SYNDROME [None]
  - OPPORTUNISTIC INFECTION [None]
  - PANCYTOPENIA [None]
  - PLATELET COUNT DECREASED [None]
  - PNEUMOCYSTIS JIROVECI PNEUMONIA [None]
  - PYREXIA [None]
  - RED BLOOD CELL COUNT DECREASED [None]
  - RESPIRATORY DISORDER [None]
  - RESTLESSNESS [None]
  - TREMOR [None]
  - WHITE BLOOD CELL COUNT DECREASED [None]
